FAERS Safety Report 9993763 (Version 2)
Quarter: 2014Q2

REPORT INFORMATION
  Report Type: Report from Study
  Country: CH (occurrence: CH)
  Receive Date: 20140310
  Receipt Date: 20140401
  Transmission Date: 20141212
  Serious: Yes (Hospitalization, Other)
  Sender: FDA-Public Use
  Company Number: CH-GILEAD-2014-0095803

PATIENT
  Age: 53 Year
  Sex: Male

DRUGS (8)
  1. SOFOSBUVIR [Suspect]
     Indication: HEPATITIS C
     Dosage: 400 MG, QD
     Route: 048
     Dates: start: 20131106, end: 20140112
  2. RIBAVIRIN [Suspect]
     Indication: HEPATITIS C
     Dosage: 200 MG, QD
     Route: 048
     Dates: start: 20131016, end: 20140112
  3. CYCLOSPORIN A [Concomitant]
     Dosage: UNK
     Dates: start: 2007
  4. PREDNISONE [Concomitant]
     Dosage: UNK
     Dates: start: 2007
  5. EUTHYROX [Concomitant]
     Dosage: UNK
     Dates: start: 2007
  6. ALDACTONE                          /00006201/ [Concomitant]
     Dosage: UNK
     Dates: start: 201308, end: 20140112
  7. CALCIMAGON D3 [Concomitant]
     Dosage: UNK
     Dates: start: 2007
  8. FOSAMAX [Concomitant]
     Dosage: UNK
     Dates: start: 2007

REACTIONS (1)
  - Liver transplant [Recovered/Resolved]
